FAERS Safety Report 5122343-9 (Version None)
Quarter: 2006Q4

REPORT INFORMATION
  Report Type: 
  Country: None (occurrence: None)
  Receive Date: 20061004
  Receipt Date: 20060922
  Transmission Date: 20070319
  Serious: Yes (Hospitalization)
  Sender: FDA-Public Use
  Company Number: 2006BI013492

PATIENT
  Age: 77 Year
  Sex: Female

DRUGS (6)
  1. AVONEX [Suspect]
     Indication: MULTIPLE SCLEROSIS
     Dosage: 30 UG QW IM
     Route: 030
     Dates: start: 20000101, end: 20030101
  2. AVONEX [Suspect]
     Indication: MULTIPLE SCLEROSIS
     Dosage: 30 UG QW IM
     Route: 030
     Dates: start: 20030101, end: 20060901
  3. ZETIA [Concomitant]
  4. CALCIUM SUPPLEMENT [Concomitant]
  5. ASCORBIC ACID [Concomitant]
  6. THIAMINE HCL [Concomitant]

REACTIONS (8)
  - ASTHENIA [None]
  - BACTERIAL INFECTION [None]
  - BLOOD ALBUMIN INCREASED [None]
  - HEPATIC ENZYME INCREASED [None]
  - OSTEOPOROSIS [None]
  - PYREXIA [None]
  - URINARY INCONTINENCE [None]
  - VIRAL INFECTION [None]
